FAERS Safety Report 5860632-0 (Version None)
Quarter: 2008Q3

REPORT INFORMATION
  Report Type: 
  Country: None (occurrence: None)
  Receive Date: 20080827
  Receipt Date: 20071008
  Transmission Date: 20090109
  Serious: No
  Sender: FDA-Public Use
  Company Number: US-ABBOTT-07P-163-0419788-00

PATIENT
  Sex: Female

DRUGS (2)
  1. COATED PDS [Suspect]
     Indication: DRUG USE FOR UNKNOWN INDICATION
     Route: 048
     Dates: start: 20071001, end: 20071004
  2. COATED PDS [Suspect]
     Dosage: WHITE
     Route: 048
     Dates: start: 20050101, end: 20070930

REACTIONS (3)
  - HYPOACUSIS [None]
  - LIP PAIN [None]
  - SWOLLEN TONGUE [None]
